FAERS Safety Report 5162067-5 (Version None)
Quarter: 2006Q4

REPORT INFORMATION
  Report Type: 
  Country: None (occurrence: None)
  Receive Date: 20061121
  Receipt Date: 20061109
  Transmission Date: 20070319
  Serious: Yes (Death, Other)
  Sender: FDA-Public Use
  Company Number: 2006JP003507

PATIENT
  Age: 60 Year
  Sex: Male
  Weight: 85 kg

DRUGS (17)
  1. PROGRAF [Suspect]
     Indication: LIVER TRANSPLANT
     Dosage: SEE IMAGE
     Dates: start: 20040224, end: 20040224
  2. PROGRAF [Suspect]
     Indication: LIVER TRANSPLANT
     Dosage: SEE IMAGE
     Dates: start: 20040225, end: 20040620
  3. PROGRAF [Suspect]
     Indication: LIVER TRANSPLANT
     Dosage: SEE IMAGE
     Dates: start: 20040621, end: 20040621
  4. PROGRAF [Suspect]
     Indication: LIVER TRANSPLANT
     Dosage: SEE IMAGE
     Dates: start: 20040622, end: 20040622
  5. PREDNISOLONE [Suspect]
     Indication: LIVER TRANSPLANT
     Dosage: SEE IMAGE
     Dates: start: 20040302, end: 20040505
  6. PREDNISOLONE [Suspect]
     Indication: LIVER TRANSPLANT
     Dosage: SEE IMAGE
     Dates: start: 20040514, end: 20040621
  7. PREDNISOLONE [Suspect]
     Indication: LIVER TRANSPLANT
     Dosage: 10 MG, UNK
     Route: 013
     Dates: start: 20040522, end: 20040522
  8. METHYLPREDNISOLONE [Suspect]
     Dosage: SEE IMAGE
     Dates: start: 20040223, end: 20040301
  9. METHYLPREDNISOLONE [Suspect]
     Dosage: SEE IMAGE
     Dates: start: 20040308, end: 20040310
  10. METHYLPREDNISOLONE [Suspect]
     Dosage: SEE IMAGE
     Dates: start: 20040519, end: 20040521
  11. METHYLPREDNISOLONE [Suspect]
     Dosage: SEE IMAGE
     Dates: start: 20040611, end: 20040613
  12. METHYLPREDNISOLONE [Suspect]
     Dosage: SEE IMAGE
     Dates: start: 20040623, end: 20040624
  13. AZATHIOPRINE [Concomitant]
  14. CYCLOPHOSPHAMIDE [Concomitant]
  15. PROSTAGLANDIN E1 (ALPROSTADIL) [Concomitant]
  16. FOY (GABEXATE MESILATE) [Concomitant]
  17. RITUXIMAB [Concomitant]

REACTIONS (10)
  - DISSEMINATED INTRAVASCULAR COAGULATION [None]
  - HAEMORRHAGE [None]
  - HEPATIC FAILURE [None]
  - HEPATIC HAEMATOMA [None]
  - HEPATIC INFARCTION [None]
  - HEPATIC NECROSIS [None]
  - INFECTION [None]
  - PORTAL VEIN THROMBOSIS [None]
  - POST PROCEDURAL COMPLICATION [None]
  - TRANSPLANT REJECTION [None]
